FAERS Safety Report 24817761 (Version 1)
Quarter: 2025Q1

REPORT INFORMATION
  Report Type: Spontaneous
  Country: DE (occurrence: DE)
  Receive Date: 20250108
  Receipt Date: 20250108
  Transmission Date: 20250408
  Serious: Yes (Death, Other)
  Sender: BRISTOL-MYERS SQUIBB COMPANY
  Company Number: DE-BRISTOL-MYERS SQUIBB COMPANY-2025-002324

PATIENT

DRUGS (3)
  1. AZACITIDINE [Suspect]
     Active Substance: AZACITIDINE
     Indication: Blastic plasmacytoid dendritic cell neoplasia
  2. TAGRAXOFUSP [Suspect]
     Active Substance: TAGRAXOFUSP
     Indication: Blastic plasmacytoid dendritic cell neoplasia
     Route: 042
  3. VENETOCLAX [Suspect]
     Active Substance: VENETOCLAX
     Indication: Blastic plasmacytoid dendritic cell neoplasia

REACTIONS (1)
  - Death [Fatal]
